FAERS Safety Report 16022706 (Version 1)
Quarter: 2019Q1

REPORT INFORMATION
  Report Type: Spontaneous
  Country: KH (occurrence: KH)
  Receive Date: 20190301
  Receipt Date: 20190301
  Transmission Date: 20190418
  Serious: No
  Sender: FDA-Public Use
  Company Number: KH-IGSA-SR10007255

PATIENT
  Age: 75 Year
  Sex: Female

DRUGS (1)
  1. ALBUTEIN [Suspect]
     Active Substance: ALBUMIN HUMAN
     Indication: ELDERLY
     Dosage: 100 ML, SINGLE
     Route: 042
     Dates: start: 20181101, end: 20181101

REACTIONS (2)
  - Pyrexia [Recovered/Resolved]
  - Malaise [Recovered/Resolved]

NARRATIVE: CASE EVENT DATE: 20181101
